FAERS Safety Report 14477250 (Version 1)
Quarter: 2018Q1

REPORT INFORMATION
  Report Type: Report from Study
  Country: US (occurrence: US)
  Receive Date: 20180201
  Receipt Date: 20180201
  Transmission Date: 20180509
  Serious: No
  Sender: FDA-Public Use
  Company Number: US-EXELIXIS-CABO-17010628

PATIENT
  Sex: Male

DRUGS (20)
  1. HYALURONIC ACID [Concomitant]
     Active Substance: HYALURONIC ACID
  2. DICLOFENAC POTASSIUM. [Concomitant]
     Active Substance: DICLOFENAC POTASSIUM
  3. FLORAJEN3 [Concomitant]
  4. CENTRUM SILVER [Concomitant]
     Active Substance: MINERALS\VITAMINS
  5. NASACORT ALLERGO [Concomitant]
  6. CLOTRIMAZOLE AND BETAMETHASONE [Concomitant]
     Active Substance: BETAMETHASONE\CLOTRIMAZOLE
  7. LEVOTHYROXIN [Concomitant]
     Active Substance: LEVOTHYROXINE
  8. PANTOPRAZOLE SODIUM. [Concomitant]
     Active Substance: PANTOPRAZOLE SODIUM
  9. TIZANIDINE. [Concomitant]
     Active Substance: TIZANIDINE
  10. CARAFATE [Concomitant]
     Active Substance: SUCRALFATE
  11. FLUCONAZOLE. [Concomitant]
     Active Substance: FLUCONAZOLE
  12. GLUCOSAMINE [Concomitant]
     Active Substance: GLUCOSAMINE
  13. OXYCODONE [Concomitant]
     Active Substance: OXYCODONE
  14. QUESTRAN [Concomitant]
     Active Substance: CHOLESTYRAMINE
  15. TYLENOL ARTHRITIS PAIN [Concomitant]
     Active Substance: ACETAMINOPHEN
  16. COMETRIQ [Suspect]
     Active Substance: CABOZANTINIB S-MALATE
     Indication: THYROID CANCER
     Dosage: 100 MG, QD
     Route: 048
     Dates: start: 20170831, end: 201709
  17. COMPAZINE [Concomitant]
     Active Substance: PROCHLORPERAZINE MALEATE
  18. FISH OIL [Concomitant]
     Active Substance: FISH OIL
  19. METFORMIN [Concomitant]
     Active Substance: METFORMIN HYDROCHLORIDE
  20. NEUPOGEN [Concomitant]
     Active Substance: FILGRASTIM

REACTIONS (1)
  - Blood pressure fluctuation [Unknown]
